FAERS Safety Report 11155318 (Version 4)
Quarter: 2016Q3

REPORT INFORMATION
  Report Type: Spontaneous
  Country: US (occurrence: US)
  Receive Date: 20150602
  Receipt Date: 20160830
  Transmission Date: 20161109
  Serious: Yes (Other)
  Sender: FDA-Public Use
  Company Number: US-PFIZER INC-2015181576

PATIENT
  Age: 68 Year
  Sex: Female

DRUGS (19)
  1. GABAPENTIN. [Concomitant]
     Active Substance: GABAPENTIN
     Dosage: UNK
  2. NOVOLOG [Concomitant]
     Active Substance: INSULIN ASPART
     Dosage: UNK
  3. SYNTHROID [Concomitant]
     Active Substance: LEVOTHYROXINE SODIUM
     Dosage: UNK
  4. VITAMIN D [Concomitant]
     Active Substance: CHOLECALCIFEROL
     Dosage: UNK
  5. XGEVA [Concomitant]
     Active Substance: DENOSUMAB
     Dosage: UNK
  6. AMARYL [Concomitant]
     Active Substance: GLIMEPIRIDE
     Dosage: UNK
  7. DIOVAN [Concomitant]
     Active Substance: VALSARTAN
     Dosage: UNK
  8. ATIVAN [Concomitant]
     Active Substance: LORAZEPAM
     Dosage: UNK
  9. LEVEMIR [Concomitant]
     Active Substance: INSULIN DETEMIR
     Dosage: UNK
  10. BIOTIN [Concomitant]
     Active Substance: BIOTIN
     Dosage: UNK
  11. PLAVIX [Concomitant]
     Active Substance: CLOPIDOGREL BISULFATE
     Dosage: UNK
  12. FEMARA [Concomitant]
     Active Substance: LETROZOLE
     Dosage: UNK
  13. LETROZOLE. [Concomitant]
     Active Substance: LETROZOLE
     Dosage: UNK
  14. SHARK CARTILAGE [Concomitant]
     Active Substance: SHARK CARTILAGE\SHARK, UNSPECIFIED
     Dosage: UNK
  15. LOPRESSOR [Concomitant]
     Active Substance: METOPROLOL TARTRATE
     Dosage: UNK
  16. IBRANCE [Suspect]
     Active Substance: PALBOCICLIB
     Indication: BREAST CANCER
     Dosage: 125 MG, CYCLIC (21 DAYS ON THEN 7 DAYS OFF)
     Dates: start: 20150501
  17. IBRANCE [Suspect]
     Active Substance: PALBOCICLIB
     Dosage: 100 MG, CYCLIC (1 CAPSULE EVERY DAY FOR 14 DAYS ON AND THEN TAKE 7 DAYS OFF)
     Dates: start: 20150504
  18. LEXAPRO [Concomitant]
     Active Substance: ESCITALOPRAM OXALATE
     Dosage: UNK
  19. LIPITOR [Concomitant]
     Active Substance: ATORVASTATIN CALCIUM
     Dosage: UNK

REACTIONS (6)
  - Clostridium difficile infection [Unknown]
  - Blood count abnormal [Unknown]
  - Diarrhoea [Unknown]
  - White blood cell count decreased [Unknown]
  - Disease progression [Unknown]
  - Breast cancer [Unknown]

NARRATIVE: CASE EVENT DATE: 201505
